FAERS Safety Report 19781888 (Version 1)
Quarter: 2021Q3

REPORT INFORMATION
  Report Type: Report from Study
  Country: DE (occurrence: DE)
  Receive Date: 20210902
  Receipt Date: 20210902
  Transmission Date: 20211014
  Serious: Yes (Other)
  Sender: FDA-Public Use
  Company Number: DE-BIOGEN-2017BI00485066

PATIENT
  Age: 29 Day
  Sex: Female

DRUGS (5)
  1. AVONEX PEN [Suspect]
     Active Substance: INTERFERON BETA-1A
     Route: 050
     Dates: end: 201704
  2. AVONEX PEN [Suspect]
     Active Substance: INTERFERON BETA-1A
  3. AVONEX PEN [Suspect]
     Active Substance: INTERFERON BETA-1A
  4. VITAMIN K [Concomitant]
     Active Substance: PHYTONADIONE
     Indication: PROPHYLAXIS
     Route: 048
  5. AVONEX PEN [Suspect]
     Active Substance: INTERFERON BETA-1A
     Indication: MATERNAL EXPOSURE TIMING UNSPECIFIED
     Route: 050
     Dates: start: 20150820, end: 20160402

REACTIONS (3)
  - Foetal exposure during pregnancy [Recovered/Resolved]
  - Maternal exposure during breast feeding [Recovered/Resolved]
  - Developmental hip dysplasia [Recovered/Resolved]

NARRATIVE: CASE EVENT DATE: 20161221
